FAERS Safety Report 4681164-1 (Version None)
Quarter: 2005Q2

REPORT INFORMATION
  Report Type: 
  Country: None (occurrence: None)
  Receive Date: 20050603
  Receipt Date: 20050524
  Transmission Date: 20051028
  Serious: Yes (Other)
  Sender: FDA-Public Use
  Company Number: BW-BRISTOL-MYERS SQUIBB COMPANY-12980785

PATIENT
  Age: 2 Year
  Sex: Female

DRUGS (3)
  1. STAVUDINE [Suspect]
     Indication: HIV INFECTION
     Dosage: INTERRUPTED ON 20-MAY-2005.
     Route: 048
     Dates: start: 20050323
  2. LAMIVUDINE [Suspect]
     Indication: HIV INFECTION
     Dosage: INTERRUPTED ON 20-MAY-2005.
     Route: 048
     Dates: start: 20050323
  3. KALETRA [Suspect]
     Indication: HIV INFECTION
     Dosage: INTERRUPTED ON 20-MAY-2005.
     Route: 048
     Dates: start: 20050323

REACTIONS (1)
  - HEPATITIS A [None]
